FAERS Safety Report 9732251 (Version 1)
Quarter: 2013Q4

REPORT INFORMATION
  Report Type: Spontaneous
  Country: GB (occurrence: GB)
  Receive Date: 20131205
  Receipt Date: 20131205
  Transmission Date: 20140711
  Serious: Yes (Death)
  Sender: FDA-Public Use
  Company Number: GB-MYLANLABS-2013S1026441

PATIENT
  Age: 37 Year
  Sex: Male

DRUGS (16)
  1. MIRTAZAPINE [Suspect]
     Indication: ANXIETY
     Dates: end: 201208
  2. OMEPRAZOLE [Suspect]
     Indication: PRODUCT USED FOR UNKNOWN INDICATION
     Dates: end: 201208
  3. BUPRENORPHINE [Suspect]
     Indication: DRUG DEPENDENCE
     Dates: start: 201102, end: 201106
  4. BUPRENORPHINE [Suspect]
     Indication: DRUG DEPENDENCE
     Dates: start: 201106, end: 2012
  5. CODEINE [Suspect]
     Indication: BACK PAIN
     Dates: end: 201208
  6. DIAZEPAM [Suspect]
     Indication: PRODUCT USED FOR UNKNOWN INDICATION
     Dates: end: 201208
  7. HEROIN [Suspect]
     Dates: end: 201208
  8. IRON [Suspect]
     Indication: PRODUCT USED FOR UNKNOWN INDICATION
     Dates: end: 2012
  9. METHADONE [Suspect]
     Indication: PRODUCT USED FOR UNKNOWN INDICATION
     Dates: end: 201208
  10. NITRAZEPAM [Suspect]
     Indication: PRODUCT USED FOR UNKNOWN INDICATION
     Dates: end: 201208
  11. NOSCAPINE [Suspect]
     Indication: PRODUCT USED FOR UNKNOWN INDICATION
     Dates: end: 201208
  12. PAPAVERINE [Suspect]
     Indication: PRODUCT USED FOR UNKNOWN INDICATION
     Dates: end: 201208
  13. STEROIDS [Suspect]
     Indication: PRODUCT USED FOR UNKNOWN INDICATION
     Dates: end: 2012
  14. SUBUTEX [Suspect]
     Indication: DRUG DEPENDENCE
     Dates: start: 2012, end: 20120825
  15. SUBUTEX [Suspect]
     Indication: DRUG DEPENDENCE
     Dates: start: 20120830, end: 20120830
  16. WARFARIN [Concomitant]
     Indication: DEEP VEIN THROMBOSIS

REACTIONS (5)
  - Drug abuse [Fatal]
  - Overdose [Fatal]
  - Drug ineffective [Recovered/Resolved]
  - Feeling abnormal [Recovered/Resolved]
  - Swelling face [Recovered/Resolved]
